FAERS Safety Report 16934915 (Version 1)
Quarter: 2019Q4

REPORT INFORMATION
  Report Type: Report from Study
  Country: GB (occurrence: GB)
  Receive Date: 20191018
  Receipt Date: 20191018
  Transmission Date: 20200122
  Serious: Yes (Hospitalization, Other)
  Sender: FDA-Public Use
  Company Number: GB-JNJFOC-20191014263

PATIENT

DRUGS (9)
  1. ESOMEPRAZOLE. [Concomitant]
     Active Substance: ESOMEPRAZOLE MAGNESIUM
     Route: 048
  2. USTEKINUMAB [Suspect]
     Active Substance: USTEKINUMAB
     Indication: CROHN^S DISEASE
     Route: 058
     Dates: start: 20171011
  3. CLONAZEPAM. [Concomitant]
     Active Substance: CLONAZEPAM
     Route: 048
  4. HYOSCINE BUTYLBROMIDE [Concomitant]
     Active Substance: BUTYLSCOPOLAMINE BROMIDE
     Dosage: QDS
     Route: 048
  5. SODIUM BICARBONATE. [Concomitant]
     Active Substance: SODIUM BICARBONATE
     Route: 048
  6. GAVISCON ADVANCE [Concomitant]
     Active Substance: POTASSIUM BICARBONATE\SODIUM ALGINATE
     Route: 065
  7. SODIUM VALPROATE [Concomitant]
     Active Substance: VALPROATE SODIUM
     Dosage: BD
     Route: 048
  8. TOPIRAMATE. [Concomitant]
     Active Substance: TOPIRAMATE
     Route: 048
  9. LOPERAMIDE [Concomitant]
     Active Substance: LOPERAMIDE
     Dosage: 18 MG BD AM+PM, 16 MG LUNCH AND DINNER TIME ORALLY
     Route: 048

REACTIONS (7)
  - Urosepsis [Recovered/Resolved]
  - Head injury [Unknown]
  - Epilepsy [Unknown]
  - Gastrointestinal stoma output increased [Recovered/Resolved]
  - Facial bones fracture [Unknown]
  - Delirium [Recovered/Resolved]
  - Acute kidney injury [Recovered/Resolved]

NARRATIVE: CASE EVENT DATE: 20180807
